FAERS Safety Report 8916736 (Version 1)
Quarter: 2012Q4

REPORT INFORMATION
  Report Type: Report from Study
  Country: GB (occurrence: GB)
  Receive Date: 20121120
  Receipt Date: 20121120
  Transmission Date: 20130627
  Serious: Yes (Death)
  Sender: FDA-Public Use
  Company Number: GB-ABBOTT-12P-167-1009250-00

PATIENT
  Sex: Male

DRUGS (1)
  1. HUMIRA [Suspect]
     Indication: RHEUMATOID ARTHRITIS
     Route: 058
     Dates: start: 20061215

REACTIONS (5)
  - Metastases to lung [Fatal]
  - Bronchopneumonia [Fatal]
  - Bladder neoplasm [Fatal]
  - Hydronephrosis [Fatal]
  - Asthma [Fatal]
